FAERS Safety Report 6203823-1 (Version None)
Quarter: 2009Q2

REPORT INFORMATION
  Report Type: 
  Country: None (occurrence: None)
  Receive Date: 20090527
  Receipt Date: 20090527
  Transmission Date: 20091009
  Serious: Yes (Life-Threatening, Hospitalization, Other)
  Sender: FDA-Public Use
  Company Number: PHHO2004US16955

PATIENT
  Sex: Male
  Weight: 56.8 kg

DRUGS (24)
  1. CIBADREX T29368+ [Suspect]
     Indication: HYPERTENSION
     Dosage: LEVEL 1
     Route: 048
     Dates: start: 20031210, end: 20040112
  2. CIBADREX T29368+ [Suspect]
     Dosage: LEVEL 2
     Route: 048
     Dates: start: 20040113, end: 20040209
  3. CIBADREX T29368+ [Suspect]
     Dosage: LEVEL 3
     Route: 048
     Dates: start: 20040210, end: 20040406
  4. CIBADREX T29368+ [Suspect]
     Dosage: LEVEL 2
     Route: 048
     Dates: start: 20040407, end: 20040607
  5. CIBADREX T29368+ [Suspect]
     Dosage: UNK, LEVEL 3
     Route: 048
     Dates: start: 20040608, end: 20041130
  6. FLOMAX [Concomitant]
  7. ASPIRIN [Concomitant]
  8. ALBUTEROL [Concomitant]
  9. COMBIVENT [Concomitant]
  10. NASACORT [Concomitant]
  11. ZOCOR [Concomitant]
  12. KLONOPIN [Concomitant]
  13. ZOLOFT [Concomitant]
  14. TYLENOL [Concomitant]
  15. IPRATROPIUM BROMIDE [Concomitant]
  16. SPIRIVA [Concomitant]
  17. AZITHROMYCIN [Concomitant]
  18. LORAZEPAM [Concomitant]
  19. PHENERGAN [Concomitant]
  20. MULTI-VITAMIN [Concomitant]
  21. LEVOFLOXACIN [Concomitant]
  22. PREDNISONE [Concomitant]
  23. BRONCHODILATORS [Concomitant]
  24. STEROIDS NOS [Concomitant]

REACTIONS (19)
  - ARTERIOSCLEROSIS [None]
  - ASTHENIA [None]
  - BLOOD CREATINE PHOSPHOKINASE INCREASED [None]
  - CARDIAC DISORDER [None]
  - CHRONIC OBSTRUCTIVE PULMONARY DISEASE [None]
  - DECREASED APPETITE [None]
  - FALL [None]
  - FATIGUE [None]
  - HEAD INJURY [None]
  - HYPONATRAEMIA [None]
  - INCREASED UPPER AIRWAY SECRETION [None]
  - LUNG CONSOLIDATION [None]
  - LUNG SQUAMOUS CELL CARCINOMA STAGE UNSPECIFIED [None]
  - MYOCARDIAL INFARCTION [None]
  - NEUROPATHY PERIPHERAL [None]
  - SINUS ARRHYTHMIA [None]
  - SYNCOPE [None]
  - URINARY INCONTINENCE [None]
  - WEIGHT DECREASED [None]
